FAERS Safety Report 4733351-1 (Version None)
Quarter: 2005Q3

REPORT INFORMATION
  Report Type: 
  Country: None (occurrence: None)
  Receive Date: 20050803
  Receipt Date: 20050525
  Transmission Date: 20060218
  Serious: Yes (Death)
  Sender: FDA-Public Use
  Company Number: US-BRISTOL-MYERS SQUIBB COMPANY-12981890

PATIENT
  Age: 47 Year
  Sex: Female

DRUGS (8)
  1. PARAPLATIN [Suspect]
     Indication: SMALL CELL LUNG CANCER METASTATIC
     Route: 042
     Dates: start: 20041223, end: 20050223
  2. VEPESID [Suspect]
     Indication: SMALL CELL LUNG CANCER METASTATIC
     Route: 042
     Dates: start: 20041223, end: 20050225
  3. OXYCONTIN [Concomitant]
     Route: 048
     Dates: start: 20050422
  4. OXYIR [Concomitant]
     Dates: start: 20050422
  5. ATROPINE [Concomitant]
  6. DURAGESIC-100 [Concomitant]
     Dates: start: 20050427
  7. MORPHINE [Concomitant]
     Dates: start: 20050427
  8. ATIVAN [Concomitant]
     Dates: start: 20050427

REACTIONS (1)
  - MALIGNANT NEOPLASM PROGRESSION [None]
